FAERS Safety Report 20581865 (Version 7)
Quarter: 2022Q3

REPORT INFORMATION
  Report Type: Other
  Country: AR (occurrence: None)
  Receive Date: 20220311
  Receipt Date: 20220721
  Transmission Date: 20221026
  Serious: Yes (Death, Hospitalization, Other)
  Sender: FDA-Public Use
  Company Number: AR-ROCHE-3047265

PATIENT
  Sex: Female

DRUGS (4)
  1. SATRALIZUMAB [Suspect]
     Active Substance: SATRALIZUMAB
     Indication: Neuromyelitis optica spectrum disorder
     Dosage: SECOND DOSE RECEIVED ON 31/JAN/2022?MOST RECENT DOSE RECEIVED ON 14/FEB/2022?MOST RECENT DOSE RECEIV
     Route: 065
     Dates: start: 20220117
  2. AZATHIOPRINE [Concomitant]
     Active Substance: AZATHIOPRINE
     Dates: start: 2020
  3. MEPREDNISONE [Concomitant]
     Active Substance: MEPREDNISONE
  4. PREDNISONE [Concomitant]
     Active Substance: PREDNISONE

REACTIONS (7)
  - Febrile neutropenia [Recovering/Resolving]
  - Urinary tract infection [Recovering/Resolving]
  - Myelosuppression [Recovering/Resolving]
  - Sepsis [Fatal]
  - Blood culture positive [Unknown]
  - Osteomyelitis [Recovering/Resolving]
  - Fistula [Recovering/Resolving]

NARRATIVE: CASE EVENT DATE: 20220420
